FAERS Safety Report 16825187 (Version 1)
Quarter: 2019Q3

REPORT INFORMATION
  Report Type: Spontaneous
  Country: NL (occurrence: NL)
  Receive Date: 20190919
  Receipt Date: 20190919
  Transmission Date: 20191005
  Serious: Yes (Other)
  Sender: FDA-Public Use
  Company Number: NL-AUROBINDO-AUR-APL-2019-059887

PATIENT
  Age: 77 Year
  Sex: Female

DRUGS (5)
  1. PERINDOPRIL [Suspect]
     Active Substance: PERINDOPRIL
     Indication: HYPERTENSION
     Dosage: 4 MILLIGRAM, ONCE A DAY
     Route: 065
  2. THYRAX [Interacting]
     Active Substance: LEVOTHYROXINE
     Indication: AUTOIMMUNE THYROIDITIS
     Dosage: 0.03 MILLIGRAM (3 TABLETS OF 0.025 MG PER DAY)
     Route: 048
     Dates: start: 1994
  3. THYRAX [Interacting]
     Active Substance: LEVOTHYROXINE
     Indication: THYROID MASS
  4. THYRAX [Interacting]
     Active Substance: LEVOTHYROXINE
     Indication: GOITRE
  5. PERINDOPRIL [Interacting]
     Active Substance: PERINDOPRIL
     Dosage: 6 MILLIGRAM, ONCE A DAY (6 MG PER DAY)
     Route: 065

REACTIONS (4)
  - Burning sensation [Not Recovered/Not Resolved]
  - Drug interaction [Unknown]
  - Skin hypertrophy [Not Recovered/Not Resolved]
  - Blood pressure increased [Not Recovered/Not Resolved]
